FAERS Safety Report 8168999-8 (Version None)
Quarter: 2012Q1

REPORT INFORMATION
  Report Type: 
  Country: None (occurrence: None)
  Receive Date: 20120227
  Receipt Date: 20120220
  Transmission Date: 20120608
  Serious: Yes (Hospitalization)
  Sender: FDA-Public Use
  Company Number: PHHO2012FR003043

PATIENT
  Sex: Male
  Weight: 40.5 kg

DRUGS (4)
  1. ADRIAMYCIN PFS [Concomitant]
     Indication: BONE SARCOMA
     Dosage: 102 MG, UNK
     Route: 065
     Dates: start: 20111121
  2. METHOTREXATE [Suspect]
     Indication: BONE SARCOMA
     Dosage: 17 G, UNK
     Route: 065
     Dates: start: 20110726
  3. ZOLEDRONIC [Suspect]
     Indication: BONE SARCOMA
     Dosage: 4 MG, UNK
     Route: 065
     Dates: start: 20110720
  4. CISPLATIN [Suspect]
     Indication: BONE SARCOMA
     Dosage: 163 MG, UNK
     Route: 065
     Dates: start: 20111121

REACTIONS (3)
  - HEARING IMPAIRED [None]
  - HAEMATOMA [None]
  - RENAL TUBULAR DISORDER [None]
